FAERS Safety Report 6522085-9 (Version None)
Quarter: 2009Q4

REPORT INFORMATION
  Report Type: 
  Country: None (occurrence: None)
  Receive Date: 20091230
  Receipt Date: 20091222
  Transmission Date: 20100525
  Serious: Yes (Hospitalization)
  Sender: FDA-Public Use
  Company Number: PHHO2009ZA15904

PATIENT
  Age: 57 Year
  Sex: Male

DRUGS (1)
  1. TASIGNA [Suspect]
     Indication: CHRONIC MYELOID LEUKAEMIA
     Dosage: 400 MG, BID
     Route: 048

REACTIONS (6)
  - DEHYDRATION [None]
  - FATIGUE [None]
  - HAEMOGLOBIN DECREASED [None]
  - LEUKOCYTOSIS [None]
  - LOSS OF CONSCIOUSNESS [None]
  - MALAISE [None]
